FAERS Safety Report 14955693 (Version 1)
Quarter: 2018Q2

REPORT INFORMATION
  Report Type: Spontaneous
  Country: GB (occurrence: GB)
  Receive Date: 20180531
  Receipt Date: 20180531
  Transmission Date: 20180711
  Serious: Yes (Other)
  Sender: FDA-Public Use
  Company Number: GB-ASTRAZENECA-2018SE71422

PATIENT
  Age: 79 Year
  Sex: Female
  Weight: 104.8 kg

DRUGS (8)
  1. BUDESONIDE AND FORMOTEROL FUMARATE [Suspect]
     Active Substance: BUDESONIDE\FORMOTEROL FUMARATE
     Indication: CHRONIC OBSTRUCTIVE PULMONARY DISEASE
     Route: 055
     Dates: start: 20180514
  2. ACETYLSALICYLIC ACID [Concomitant]
     Active Substance: ASPIRIN
  3. PARACETAMOL [Concomitant]
     Active Substance: ACETAMINOPHEN
  4. LERCANIDIPINE [Concomitant]
     Active Substance: LERCANIDIPINE
  5. ATENOLOL. [Concomitant]
     Active Substance: ATENOLOL
  6. ATORVASTATIN [Concomitant]
     Active Substance: ATORVASTATIN
  7. LEVOTHYROXINE SODIUM. [Concomitant]
     Active Substance: LEVOTHYROXINE SODIUM
  8. SALBUTAMOL [Concomitant]
     Active Substance: ALBUTEROL

REACTIONS (3)
  - Vomiting [Not Recovered/Not Resolved]
  - Malaise [Not Recovered/Not Resolved]
  - Throat irritation [Unknown]

NARRATIVE: CASE EVENT DATE: 20180514
